FAERS Safety Report 18732760 (Version 10)
Quarter: 2022Q3

REPORT INFORMATION
  Report Type: Report from Study
  Country: CH (occurrence: CH)
  Receive Date: 20210113
  Receipt Date: 20220805
  Transmission Date: 20221027
  Serious: Yes (Death, Life-Threatening, Hospitalization, Other)
  Sender: FDA-Public Use
  Company Number: CH-ABBVIE-20K-151-3636287-00

PATIENT
  Age: 81 Year
  Sex: Male
  Weight: 76.4 kg

DRUGS (52)
  1. VENETOCLAX [Suspect]
     Active Substance: VENETOCLAX
     Indication: Chronic lymphocytic leukaemia
     Route: 048
     Dates: start: 20201006, end: 20201012
  2. VENETOCLAX [Suspect]
     Active Substance: VENETOCLAX
     Route: 048
     Dates: start: 20201014, end: 20201020
  3. VENETOCLAX [Suspect]
     Active Substance: VENETOCLAX
     Route: 048
     Dates: start: 20201021, end: 20201027
  4. VENETOCLAX [Suspect]
     Active Substance: VENETOCLAX
     Route: 048
     Dates: start: 20201028, end: 20201103
  5. VENETOCLAX [Suspect]
     Active Substance: VENETOCLAX
     Route: 048
     Dates: start: 20201104, end: 20201112
  6. VENETOCLAX [Suspect]
     Active Substance: VENETOCLAX
     Route: 048
     Dates: start: 20201113, end: 20210111
  7. RITUXIMAB [Suspect]
     Active Substance: RITUXIMAB
     Indication: Product used for unknown indication
     Route: 065
  8. ENOXAPARIN SODIUM [Concomitant]
     Active Substance: ENOXAPARIN SODIUM
     Indication: Product used for unknown indication
     Dosage: DAILY
     Route: 048
     Dates: start: 20200901, end: 20201014
  9. ENOXAPARIN SODIUM [Concomitant]
     Active Substance: ENOXAPARIN SODIUM
     Dosage: DAILY
     Route: 048
     Dates: start: 20210108
  10. ASPIRIN [Concomitant]
     Active Substance: ASPIRIN
     Indication: Product used for unknown indication
     Dosage: DAILY
     Route: 048
     Dates: end: 20210116
  11. BISOPROLOL FUMARATE [Concomitant]
     Active Substance: BISOPROLOL FUMARATE
     Indication: Product used for unknown indication
     Dosage: DAILY
     Route: 048
     Dates: end: 20210116
  12. VALACYCLOVIR HYDROCHLORIDE [Concomitant]
     Active Substance: VALACYCLOVIR HYDROCHLORIDE
     Indication: Product used for unknown indication
     Dosage: DAILY
     Route: 048
     Dates: end: 20210116
  13. PREDNISONE [Concomitant]
     Active Substance: PREDNISONE
     Indication: Product used for unknown indication
     Route: 048
  14. MEPERIDINE [Concomitant]
     Active Substance: MEPERIDINE
     Indication: Product used for unknown indication
     Route: 042
  15. METAMIZOLE [Concomitant]
     Active Substance: METAMIZOLE
     Indication: Product used for unknown indication
     Route: 042
  16. SOLU-MEDROL [Concomitant]
     Active Substance: METHYLPREDNISOLONE SODIUM SUCCINATE
     Indication: Product used for unknown indication
     Route: 042
  17. VENTOLIN [Concomitant]
     Active Substance: ALBUTEROL SULFATE
     Indication: Product used for unknown indication
     Route: 055
     Dates: start: 20200906, end: 20201006
  18. CARBOMER [Concomitant]
     Active Substance: CARBOMER
     Indication: Product used for unknown indication
     Route: 047
     Dates: start: 20200829, end: 20201015
  19. VASELINE PURE [Concomitant]
     Active Substance: PETROLATUM
     Indication: Product used for unknown indication
     Route: 062
     Dates: start: 20200930, end: 20201013
  20. SILVER SULFADIAZINE [Concomitant]
     Active Substance: SILVER SULFADIAZINE
     Indication: Product used for unknown indication
     Route: 062
     Dates: start: 20200908, end: 20201015
  21. HUMAN RED BLOOD CELL [Concomitant]
     Active Substance: HUMAN RED BLOOD CELL
     Indication: Product used for unknown indication
     Route: 042
  22. PREDNISONE [Concomitant]
     Active Substance: PREDNISONE
     Indication: Product used for unknown indication
     Route: 048
  23. BISOPROLOLI FUMARAS [Concomitant]
     Indication: Product used for unknown indication
     Dates: end: 20210116
  24. BISOPROLOLI FUMARAS [Concomitant]
     Dosage: DAILY
     Route: 048
     Dates: start: 20210108
  25. CRESTOR [Concomitant]
     Active Substance: ROSUVASTATIN CALCIUM
     Indication: Product used for unknown indication
     Dates: start: 20200821, end: 20210116
  26. PANTOPRAZOLE SODIUM [Concomitant]
     Active Substance: PANTOPRAZOLE SODIUM
     Indication: Product used for unknown indication
     Dosage: DAILY
     Route: 048
     Dates: start: 20200823, end: 20210116
  27. PANTOPRAZOLE SODIUM [Concomitant]
     Active Substance: PANTOPRAZOLE SODIUM
     Dosage: DAILY
     Route: 048
     Dates: start: 20210108
  28. NYSTATIN [Concomitant]
     Active Substance: NYSTATIN
     Indication: Product used for unknown indication
     Route: 048
     Dates: start: 20200919, end: 20210116
  29. NYSTATIN [Concomitant]
     Active Substance: NYSTATIN
     Dosage: DAILY
     Route: 048
     Dates: start: 20210108
  30. ALLOPURINOL [Concomitant]
     Active Substance: ALLOPURINOL
     Indication: Product used for unknown indication
     Dosage: DAILY
     Route: 048
     Dates: start: 20201005, end: 20210116
  31. HALCION [Concomitant]
     Active Substance: TRIAZOLAM
     Indication: Product used for unknown indication
     Dosage: DAILY
     Route: 048
     Dates: start: 20200828, end: 20210116
  32. BACTRIM [Concomitant]
     Active Substance: SULFAMETHOXAZOLE\TRIMETHOPRIM
     Indication: Product used for unknown indication
     Dosage: 800 MG SULFAMETHOXAZOLUM, 160 MG TRIMETHOPRIMUM
     Route: 048
     Dates: start: 20201002, end: 20210115
  33. BACTRIM [Concomitant]
     Active Substance: SULFAMETHOXAZOLE\TRIMETHOPRIM
     Dosage: DAILY
     Route: 048
     Dates: start: 20210108
  34. VALACYCLOVIR HYDROCHLORIDE [Concomitant]
     Active Substance: VALACYCLOVIR HYDROCHLORIDE
     Indication: Product used for unknown indication
     Dates: start: 20200821, end: 20210116
  35. VALACYCLOVIR HYDROCHLORIDE [Concomitant]
     Active Substance: VALACYCLOVIR HYDROCHLORIDE
     Dosage: DAILY
     Route: 048
     Dates: start: 20210108
  36. CALCIUM [Concomitant]
     Active Substance: CALCIUM
     Indication: Product used for unknown indication
     Route: 048
     Dates: start: 20200925, end: 20210116
  37. CALCIUM [Concomitant]
     Active Substance: CALCIUM
     Dosage: DAILY
     Route: 048
     Dates: start: 20210108
  38. MAGNESIUM [Concomitant]
     Active Substance: MAGNESIUM
     Indication: Product used for unknown indication
     Route: 048
     Dates: start: 20200920, end: 20210116
  39. MAGNESIUM [Concomitant]
     Active Substance: MAGNESIUM
     Dosage: DAILY
     Route: 048
     Dates: start: 20210108
  40. RESOURCE PROTEIN [Concomitant]
     Indication: Product used for unknown indication
     Route: 048
     Dates: start: 20200902, end: 20210117
  41. RESOURCE PROTEIN [Concomitant]
     Dosage: DAILY
     Route: 048
     Dates: start: 20210108
  42. VOLTAREN [Concomitant]
     Active Substance: DICLOFENAC SODIUM
     Indication: Product used for unknown indication
  43. VALIUM [Concomitant]
     Active Substance: DIAZEPAM
     Indication: Product used for unknown indication
  44. PRIMPERAN [Concomitant]
     Active Substance: METOCLOPRAMIDE HYDROCHLORIDE
     Indication: Product used for unknown indication
  45. PARACODIN [Concomitant]
     Indication: Product used for unknown indication
  46. ACETAMINOPHEN [Concomitant]
     Active Substance: ACETAMINOPHEN
     Indication: Product used for unknown indication
  47. OXYGEN [Concomitant]
     Active Substance: OXYGEN
     Indication: Product used for unknown indication
  48. SODIUM CHLORIDE [Concomitant]
     Active Substance: SODIUM CHLORIDE
     Indication: Product used for unknown indication
  49. MORPHINE [Concomitant]
     Active Substance: MORPHINE
     Indication: Product used for unknown indication
  50. DEXAMETHASONE [Concomitant]
     Active Substance: DEXAMETHASONE
     Indication: Product used for unknown indication
  51. DORMICUM [Concomitant]
     Indication: Product used for unknown indication
  52. DAFALGAN [Concomitant]
     Active Substance: ACETAMINOPHEN
     Indication: Product used for unknown indication

REACTIONS (12)
  - COVID-19 [Fatal]
  - Oxygen saturation decreased [Not Recovered/Not Resolved]
  - COVID-19 pneumonia [Unknown]
  - Pyrexia [Unknown]
  - Diarrhoea [Unknown]
  - C-reactive protein increased [Not Recovered/Not Resolved]
  - Infusion related reaction [Recovered/Resolved]
  - Purpura [Recovered/Resolved]
  - Haematoma [Recovered/Resolved]
  - Haematoma [Not Recovered/Not Resolved]
  - Muscle atrophy [Not Recovered/Not Resolved]
  - Amnesia [Not Recovered/Not Resolved]

NARRATIVE: CASE EVENT DATE: 20201006
